FAERS Safety Report 5892320-9 (Version None)
Quarter: 2008Q3

REPORT INFORMATION
  Report Type: 
  Country: None (occurrence: None)
  Receive Date: 20080923
  Receipt Date: 20080911
  Transmission Date: 20090109
  Serious: Yes (Death, Other)
  Sender: FDA-Public Use
  Company Number: GB-RANBAXY-2008RR-18036

PATIENT
  Age: 81 Year
  Sex: Male

DRUGS (8)
  1. SIMVASTATIN [Suspect]
     Indication: BLOOD CHOLESTEROL INCREASED
     Dosage: 40 MG, UNK
     Route: 048
     Dates: start: 20080714, end: 20080814
  2. FUSIDIC ACID [Suspect]
     Indication: OSTEOMYELITIS
     Dosage: 500 MG, TID
     Route: 048
     Dates: end: 20080814
  3. ASPIRIN [Concomitant]
     Dosage: 75 MG, QD
     Route: 065
  4. FLOXACILLIN SODIUM [Concomitant]
     Dosage: 400 MG, QID
     Route: 065
  5. GLICLAZIDE [Concomitant]
     Dosage: 30 MG, QD
     Route: 065
  6. LACIPIDINE [Concomitant]
     Dosage: 2 MG, QD
     Route: 065
  7. METFORMIN HCL [Concomitant]
     Dosage: 850 MG, TID
     Route: 065
  8. RAMIPRIL [Concomitant]
     Dosage: 10 MG, QD
     Route: 065

REACTIONS (2)
  - DRUG INTERACTION [None]
  - RHABDOMYOLYSIS [None]
